FAERS Safety Report 4922070-4 (Version None)
Quarter: 2006Q1

REPORT INFORMATION
  Report Type: 
  Country: None (occurrence: None)
  Receive Date: 20060222
  Receipt Date: 20060222
  Transmission Date: 20060701
  Serious: Yes (Death, Life-Threatening, Hospitalization)
  Sender: FDA-Public Use
  Company Number: None

PATIENT
  Age: 45 Year
  Sex: Male

DRUGS (6)
  1. PROLIXIN [Suspect]
     Indication: PSYCHOTIC DISORDER
     Dosage: ? MG IM Q 2 WEEKS
     Dates: start: 19920101
  2. SEROQUEL [Suspect]
     Dosage: 600 MG Q HS
  3. DITROPAN [Concomitant]
  4. SEROQUEL [Concomitant]
  5. ELAVIL [Concomitant]
  6. BENZTROPINE MESYLATE [Concomitant]

REACTIONS (14)
  - ACUTE RESPIRATORY DISTRESS SYNDROME [None]
  - AGITATION [None]
  - ASPIRATION [None]
  - BLOOD CREATINE PHOSPHOKINASE INCREASED [None]
  - BODY TEMPERATURE INCREASED [None]
  - DELUSION [None]
  - DISSEMINATED INTRAVASCULAR COAGULATION [None]
  - DYSPNOEA [None]
  - LIVER FUNCTION TEST ABNORMAL [None]
  - LOSS OF CONSCIOUSNESS [None]
  - MENTAL STATUS CHANGES [None]
  - MULTI-ORGAN DISORDER [None]
  - MUSCLE RIGIDITY [None]
  - POSTURING [None]
